FAERS Safety Report 8779016 (Version 1)
Quarter: 2012Q4

REPORT INFORMATION
  Report Type: 
  Country: US (occurrence: US)
  Receive Date: 20120912
  Receipt Date: 20120912
  Transmission Date: 20130627
  Serious: Yes (Other)
  Sender: FDA-Public Use
  Company Number: US-PFIZER INC-2012221103

PATIENT
  Age: 58 Year
  Sex: Female
  Weight: 69 kg

DRUGS (2)
  1. PREMPRO [Suspect]
     Indication: HOT FLUSH
     Dosage: 0.625/2.5mg, 2x/day
  2. BENICAR [Concomitant]
     Indication: HYPERTENSION
     Dosage: 12.5 mg, daily

REACTIONS (1)
  - Lower respiratory tract infection [Recovered/Resolved]
